FAERS Safety Report 10952769 (Version 1)
Quarter: 2015Q1

REPORT INFORMATION
  Report Type: Spontaneous
  Country: US (occurrence: None)
  Receive Date: 20150226
  Receipt Date: 20150226
  Transmission Date: 20150721
  Serious: No
  Sender: FDA-Public Use
  Company Number: TAP2006Q00636

PATIENT
  Age: 46 Year
  Sex: Female
  Weight: 50.8 kg

DRUGS (1)
  1. PREVACID [Suspect]
     Active Substance: LANSOPRAZOLE
     Indication: GASTRITIS
     Dosage: 2 IN 1 D
     Route: 048
     Dates: start: 200508, end: 20060402

REACTIONS (6)
  - Weight decreased [None]
  - Diarrhoea [None]
  - Condition aggravated [None]
  - Faeces discoloured [None]
  - Pyoderma gangrenosum [None]
  - Pyrexia [None]

NARRATIVE: CASE EVENT DATE: 200508
